FAERS Safety Report 15488260 (Version 1)
Quarter: 2018Q4

REPORT INFORMATION
  Report Type: Spontaneous
  Country: US (occurrence: US)
  Receive Date: 20181011
  Receipt Date: 20181011
  Transmission Date: 20190205
  Serious: No
  Sender: FDA-Public Use
  Company Number: US-RISING PHARMACEUTICALS, INC.-2018RIS00043

PATIENT
  Sex: Female
  Weight: 64.85 kg

DRUGS (11)
  1. FENOFIBRATE. [Suspect]
     Active Substance: FENOFIBRATE
     Dosage: UNK
  2. AMLODIPINE [Concomitant]
     Active Substance: AMLODIPINE BESYLATE
     Dosage: UNK
  3. PRAVASTATIN. [Suspect]
     Active Substance: PRAVASTATIN
     Dosage: 40 MG, 1X/DAY
  4. FISH OIL OMEGA SUPPLEMENT [Concomitant]
  5. LOSARTAN. [Concomitant]
     Active Substance: LOSARTAN
     Dosage: 25 MG, 1X/DAY
  6. PRAVASTATIN. [Suspect]
     Active Substance: PRAVASTATIN
     Dosage: UNK
  7. CARVEDILOL. [Concomitant]
     Active Substance: CARVEDILOL
     Dosage: 25 MG, 2X/DAY
  8. MULTIVITAMIN [Concomitant]
     Active Substance: VITAMINS
  9. PROCTOZONE-HC [Suspect]
     Active Substance: HYDROCORTISONE
     Indication: HAEMORRHOIDS
     Dosage: UNK, 1X/DAY (A THIN FILM)
     Route: 061
     Dates: start: 2016
  10. ASPIRIN. [Concomitant]
     Active Substance: ASPIRIN
     Dosage: 81 MG, 1X/DAY
  11. TAPAZOLE [Concomitant]
     Active Substance: METHIMAZOLE
     Dosage: 5 MG, 1X/DAY

REACTIONS (6)
  - Blood creatine phosphokinase increased [Unknown]
  - Lower urinary tract symptoms [Not Recovered/Not Resolved]
  - Myalgia [Recovered/Resolved]
  - Anorectal disorder [Not Recovered/Not Resolved]
  - Muscle atrophy [Not Recovered/Not Resolved]
  - Streptococcal urinary tract infection [Not Recovered/Not Resolved]

NARRATIVE: CASE EVENT DATE: 2016
